FAERS Safety Report 17565873 (Version 1)
Quarter: 2020Q1

REPORT INFORMATION
  Report Type: Spontaneous
  Country: DE (occurrence: DE)
  Receive Date: 20200320
  Receipt Date: 20200320
  Transmission Date: 20200409
  Serious: Yes (Hospitalization, Other)
  Sender: FDA-Public Use
  Company Number: DE-PFIZER INC-2020116466

PATIENT
  Sex: Male

DRUGS (2)
  1. CYTOTEC [Suspect]
     Active Substance: MISOPROSTOL
     Dosage: 50 UG, AT 12:50 P.M.
     Route: 064
     Dates: start: 20180423
  2. CYTOTEC [Suspect]
     Active Substance: MISOPROSTOL
     Indication: LABOUR INDUCTION
     Dosage: 100 ?G AT 07:10 A.M., 100 ?G AT 11:15 A.M.
     Route: 064
     Dates: start: 20180424

REACTIONS (6)
  - Neonatal respiratory failure [Recovered/Resolved]
  - Foetal exposure during delivery [Unknown]
  - Cyanosis neonatal [Unknown]
  - Neonatal respiratory distress syndrome [Recovered/Resolved]
  - Pulmonary haemorrhage neonatal [Unknown]
  - Foetal heart rate decreased [Unknown]

NARRATIVE: CASE EVENT DATE: 20180424
